FAERS Safety Report 7451172-6 (Version None)
Quarter: 2011Q2

REPORT INFORMATION
  Report Type: 
  Country: None (occurrence: None)
  Receive Date: 20110502
  Receipt Date: 20110420
  Transmission Date: 20111010
  Serious: Yes (Hospitalization)
  Sender: FDA-Public Use
  Company Number: PHHY2011JP34857

PATIENT
  Sex: Male

DRUGS (5)
  1. ADRENAL CORTEX EXTRACT INJ [Suspect]
     Route: 062
  2. ADRENAL CORTEX EXTRACT INJ [Suspect]
     Indication: DERMATITIS ATOPIC
     Route: 048
  3. NEORAL [Suspect]
     Dosage: 100 MG, DAILY IN TWO DIVIDED DOSES (MORNING AND EVENING)
     Route: 048
  4. NEORAL [Suspect]
     Indication: DERMATITIS ATOPIC
     Dosage: 200 MG, DAILY TWO DIVIDED DOSES (MORNING AND EVENING)
     Route: 048
     Dates: start: 20110101
  5. ANTEBATE [Concomitant]
     Indication: DERMATITIS ATOPIC
     Route: 062

REACTIONS (5)
  - SPINAL FRACTURE [None]
  - PAIN [None]
  - RASH [None]
  - HYPOAESTHESIA [None]
  - BED REST [None]
